FAERS Safety Report 12623524 (Version 2)
Quarter: 2016Q3

REPORT INFORMATION
  Report Type: Spontaneous
  Country: US (occurrence: US)
  Receive Date: 20160804
  Receipt Date: 20160919
  Transmission Date: 20161109
  Serious: Yes (Hospitalization, Other)
  Sender: FDA-Public Use
  Company Number: US-PFIZER INC-2010097505

PATIENT
  Age: 50 Year
  Sex: Male
  Weight: 60.32 kg

DRUGS (16)
  1. AMITRIPTYLINE HCL [Concomitant]
     Active Substance: AMITRIPTYLINE
     Dosage: 50 MG, 1X/DAY (EVERY DAY AT BED TIME)
     Route: 048
     Dates: start: 20160726
  2. CELEBREX [Suspect]
     Active Substance: CELECOXIB
     Indication: ARTHRITIS
     Dosage: 200 MG, 2X/DAY
     Route: 048
     Dates: start: 2006
  3. LYRICA [Suspect]
     Active Substance: PREGABALIN
     Indication: FIBROMYALGIA
     Dosage: 150 MG, 2X/DAY
     Route: 048
     Dates: start: 2006
  4. NITROGLYCERIN. [Concomitant]
     Active Substance: NITROGLYCERIN
     Dosage: 0.3 MG, UNK (PLACE 1 TABLET (0.3MG) BY SUBLINGUAL ROUTE AT THE FIRST SIGN OF AN ATTACK)
     Route: 060
     Dates: start: 20110812
  5. TIZANIDINE HCL [Concomitant]
     Active Substance: TIZANIDINE HYDROCHLORIDE
     Indication: MUSCLE SPASMS
     Dosage: 4 MG, AS NEEDED (1 TABLET BY ORAL, ROUTE 3 TIMES A DAY )
     Route: 048
     Dates: start: 20150430
  6. PANTOPRAZOLE SODIUM. [Concomitant]
     Active Substance: PANTOPRAZOLE SODIUM
     Dosage: 40 MG, DAILY
     Route: 048
  7. CELEBREX [Suspect]
     Active Substance: CELECOXIB
     Indication: INTERVERTEBRAL DISC PROTRUSION
  8. ALLEGRA D 24 HOUR [Concomitant]
     Dosage: 1 DF, AS NEEDED ((180 MG-240)
     Route: 048
  9. ALLEGRA D 24 HOUR [Concomitant]
     Indication: HYPERSENSITIVITY
     Dosage: 1 DF, AS NEEDED
  10. METOPROLOL SUCCINATE. [Concomitant]
     Active Substance: METOPROLOL SUCCINATE
     Dosage: 25 MG, DAILY
     Route: 048
     Dates: start: 20150113
  11. VIAGRA [Concomitant]
     Active Substance: SILDENAFIL CITRATE
     Indication: SEXUAL DYSFUNCTION
     Dosage: 100 MG, AS NEEDED (EVERY DAY AS NEEDED APPROXIMATELY 1 HOUR BEFORE SEXUAL ACTIVITY)
     Route: 048
     Dates: start: 20120711
  12. CITALOPRAM [Concomitant]
     Active Substance: CITALOPRAM HYDROBROMIDE
     Dosage: 40 MG, DAILY (TAKE 1 TABLET BY ORAL ROUTE EVERY DAY)
     Route: 048
     Dates: start: 20160726
  13. LYRICA [Suspect]
     Active Substance: PREGABALIN
     Dosage: 150 MG, 2X/DAY
     Route: 048
     Dates: start: 20160726
  14. OXYCONTIN [Concomitant]
     Active Substance: OXYCODONE HYDROCHLORIDE
     Dosage: 20 MG, 2X/DAY
     Route: 048
  15. ATORVASTATIN CALCIUM. [Concomitant]
     Active Substance: ATORVASTATIN CALCIUM
     Dosage: 10 MG, DAILY (TAKE 1 TABLET BY MOUTH EVERY DAY)
     Route: 048
     Dates: start: 20160726
  16. OXYCODONE [Suspect]
     Active Substance: OXYCODONE
     Indication: PAIN
     Dosage: 5MG. EVERY 8 HOURS

REACTIONS (2)
  - Myocardial infarction [Unknown]
  - Coronary artery occlusion [Not Recovered/Not Resolved]

NARRATIVE: CASE EVENT DATE: 20100717
